FAERS Safety Report 8541924-3 (Version None)
Quarter: 2012Q3

REPORT INFORMATION
  Report Type: 
  Country: None (occurrence: None)
  Receive Date: 20120726
  Receipt Date: 20110912
  Transmission Date: 20120928
  Serious: No
  Sender: FDA-Public Use
  Company Number: US-ASTRAZENECA-2011SE54564

PATIENT
  Age: 60 Year
  Sex: Male
  Weight: 86.2 kg

DRUGS (3)
  1. WARFARIN SODIUM [Concomitant]
     Indication: ANTICOAGULANT THERAPY
  2. SIMVASTATIN [Concomitant]
     Indication: BLOOD CHOLESTEROL ABNORMAL
  3. SEROQUEL [Suspect]
     Indication: MOOD SWINGS
     Route: 048
     Dates: start: 20090101

REACTIONS (3)
  - INSOMNIA [None]
  - OFF LABEL USE [None]
  - DRUG DOSE OMISSION [None]
